FAERS Safety Report 8045740-0 (Version None)
Quarter: 2012Q1

REPORT INFORMATION
  Report Type: 
  Country: None (occurrence: None)
  Receive Date: 20120113
  Receipt Date: 20120110
  Transmission Date: 20120608
  Serious: Yes (Death, Hospitalization, Other)
  Sender: FDA-Public Use
  Company Number: PHEH2010US03863

PATIENT
  Sex: Male

DRUGS (43)
  1. BACLOFEN [Concomitant]
  2. OXYCONTIN [Concomitant]
  3. NITROGLYCERIN [Concomitant]
  4. TOPROL-XL [Concomitant]
  5. DILAUDID [Concomitant]
     Dosage: 2 MG, UNK
     Route: 048
  6. FLUOXETINE HYDROCHLORIDE [Concomitant]
     Dosage: 20 MG, UNK
     Route: 048
  7. LABETALOL HCL [Concomitant]
     Dosage: 10 MG, Q5MIN
  8. UNASYN [Concomitant]
     Dosage: 3 G, Q6H
     Route: 042
  9. FLOMAX [Concomitant]
     Dosage: 0.4 MG, QD
     Route: 048
  10. ASPIRIN [Concomitant]
  11. LISINOPRIL [Concomitant]
  12. MULTI-VITAMIN [Concomitant]
  13. MAGNESIUM [Concomitant]
  14. ARANESP [Concomitant]
  15. AVASTIN [Concomitant]
  16. CEFEPIME [Concomitant]
  17. AUGMENTIN '125' [Concomitant]
     Dosage: 1 DF, BID
     Route: 048
  18. MEPERIDINE HCL [Concomitant]
  19. PLAVIX [Concomitant]
     Dosage: 75 MG, QD
     Route: 048
  20. PROTONIX [Concomitant]
  21. NEULASTA [Concomitant]
  22. NYSTATIN [Concomitant]
  23. LIPITOR [Concomitant]
  24. HYDROCHLOROTHIAZIDE [Concomitant]
  25. ASPIRIN [Concomitant]
  26. ACETAMINOPHEN [Concomitant]
  27. SENOKOT [Concomitant]
  28. CAMPTOSAR [Concomitant]
  29. LEUCOVORIN CALCIUM [Concomitant]
  30. ROXICET [Concomitant]
     Route: 048
  31. ZOFRAN [Concomitant]
  32. ZOSYN [Concomitant]
  33. NALTREXONE [Concomitant]
  34. FLUOROURACIL [Concomitant]
  35. AMPICILLIN SODIUM [Concomitant]
     Dosage: 2 G, UNK
     Route: 042
  36. HYDRALAZINE HCL [Concomitant]
     Dosage: 5 MG, Q20MIN
     Route: 042
  37. ZOMETA [Suspect]
     Indication: MULTIPLE MYELOMA
     Dosage: UNK UKN, UNK
     Route: 042
     Dates: end: 20090401
  38. LUPRON [Concomitant]
  39. LOPRESSOR [Concomitant]
  40. THALIDOMIDE [Concomitant]
  41. LASIX [Concomitant]
  42. AMBIEN [Concomitant]
  43. POTASSIUM CHLORIDE [Concomitant]

REACTIONS (100)
  - BONE NEOPLASM MALIGNANT [None]
  - DIVERTICULITIS [None]
  - HYPERTENSION [None]
  - SCIATICA [None]
  - ATRIAL FIBRILLATION [None]
  - CHRONIC OBSTRUCTIVE PULMONARY DISEASE [None]
  - FALL [None]
  - OEDEMA PERIPHERAL [None]
  - HAEMORRHOIDS [None]
  - NASAL SEPTUM DEVIATION [None]
  - INJURY [None]
  - METASTASES TO ABDOMINAL WALL [None]
  - NEOPLASM MALIGNANT [None]
  - FREQUENT BOWEL MOVEMENTS [None]
  - LYMPHADENOPATHY [None]
  - DEPRESSION [None]
  - ARTHRALGIA [None]
  - CHEST DISCOMFORT [None]
  - DEATH [None]
  - PAIN [None]
  - BONE DISORDER [None]
  - DYSPNOEA [None]
  - DEEP VEIN THROMBOSIS [None]
  - INTRA-ABDOMINAL HAEMATOMA [None]
  - MALIGNANT MELANOMA [None]
  - HYPERHIDROSIS [None]
  - LEFT VENTRICULAR HYPERTROPHY [None]
  - GOUT [None]
  - CHEST PAIN [None]
  - CARDIOMEGALY [None]
  - PNEUMONIA [None]
  - ANGINA UNSTABLE [None]
  - HYPERLIPIDAEMIA [None]
  - TYPE 2 DIABETES MELLITUS [None]
  - COLONIC POLYP [None]
  - OSTEOARTHRITIS [None]
  - CORONARY ARTERY DISEASE [None]
  - OSTEOMYELITIS [None]
  - EXOSTOSIS [None]
  - NAUSEA [None]
  - DECREASED APPETITE [None]
  - WEIGHT DECREASED [None]
  - BURSITIS [None]
  - GINGIVITIS [None]
  - TOOTH FRACTURE [None]
  - ARTERIOSCLEROSIS [None]
  - COLON CANCER [None]
  - PYREXIA [None]
  - MITRAL VALVE INCOMPETENCE [None]
  - OBESITY [None]
  - GASTROINTESTINAL HAEMORRHAGE [None]
  - EXCORIATION [None]
  - SMALL INTESTINAL OBSTRUCTION [None]
  - HAEMATOCHEZIA [None]
  - RADICULAR CYST [None]
  - ANISOCYTOSIS [None]
  - LYMPHATIC SYSTEM NEOPLASM [None]
  - VENTRICULAR EXTRASYSTOLES [None]
  - RESPIRATORY FAILURE [None]
  - OSTEONECROSIS OF JAW [None]
  - INTERVERTEBRAL DISC DEGENERATION [None]
  - SPINAL COMPRESSION FRACTURE [None]
  - CAROTID BRUIT [None]
  - BUNDLE BRANCH BLOCK RIGHT [None]
  - PLEURAL EFFUSION [None]
  - MITRAL VALVE PROLAPSE [None]
  - TRICUSPID VALVE INCOMPETENCE [None]
  - PROTHROMBIN TIME PROLONGED [None]
  - SINUSITIS [None]
  - DENTAL CARIES [None]
  - CERUMEN IMPACTION [None]
  - ENTEROCOCCAL INFECTION [None]
  - ELECTROCARDIOGRAM ST SEGMENT DEPRESSION [None]
  - ELECTROCARDIOGRAM QRS COMPLEX PROLONGED [None]
  - ABSCESS ORAL [None]
  - PRIMARY SEQUESTRUM [None]
  - ISCHAEMIA [None]
  - ATELECTASIS [None]
  - RENAL CYST [None]
  - BACK PAIN [None]
  - PAIN IN EXTREMITY [None]
  - HYPERCALCAEMIA [None]
  - METASTASES TO LUNG [None]
  - TACHYCARDIA [None]
  - PULPITIS DENTAL [None]
  - PROSTATE CANCER [None]
  - LUNG NEOPLASM [None]
  - ABDOMINAL HERNIA [None]
  - HYPOAESTHESIA [None]
  - PULMONARY EMBOLISM [None]
  - ANAEMIA [None]
  - SPLENIC CALCIFICATION [None]
  - ERECTILE DYSFUNCTION [None]
  - MYOCARDIAL INFARCTION [None]
  - RADICULOPATHY [None]
  - ABDOMINAL PAIN [None]
  - NEUTROPENIA [None]
  - ANXIETY [None]
  - VISION BLURRED [None]
  - STAPHYLOCOCCAL SEPSIS [None]
